FAERS Safety Report 25715582 (Version 1)
Quarter: 2025Q3

REPORT INFORMATION
  Report Type: Report from Study
  Country: US (occurrence: US)
  Receive Date: 20250822
  Receipt Date: 20250822
  Transmission Date: 20251021
  Serious: Yes (Hospitalization, Other)
  Sender: ABBVIE
  Company Number: US-ABBVIE-6426009

PATIENT
  Age: 53 Year
  Sex: Male

DRUGS (2)
  1. RINVOQ [Suspect]
     Active Substance: UPADACITINIB
     Indication: Colitis ulcerative
     Dosage: STRENGTH; 45MG?FOR 8 WEEKS
     Route: 048
     Dates: start: 20240408
  2. RINVOQ [Suspect]
     Active Substance: UPADACITINIB
     Indication: Colitis ulcerative
     Dosage: STRENGTH; 30 MG
     Route: 048
     Dates: start: 20240603, end: 202507

REACTIONS (2)
  - Ileostomy [Unknown]
  - Colectomy [Unknown]

NARRATIVE: CASE EVENT DATE: 20250701
